FAERS Safety Report 23658069 (Version 1)
Quarter: 2024Q1

REPORT INFORMATION
  Report Type: Spontaneous
  Country: AU (occurrence: AU)
  Receive Date: 20240321
  Receipt Date: 20240321
  Transmission Date: 20240409
  Serious: Yes (Hospitalization, Other)
  Sender: FDA-Public Use
  Company Number: AU-002147023-NVSC2020AU245836

PATIENT
  Age: 46 Year
  Sex: Female
  Weight: 86.6 kg

DRUGS (17)
  1. RYDAPT [Suspect]
     Active Substance: MIDOSTAURIN
     Indication: Acute myeloid leukaemia
     Dosage: 50 MG
     Route: 065
  2. FLUDARABINE [Suspect]
     Active Substance: FLUDARABINE PHOSPHATE
     Indication: Acute lymphocytic leukaemia
     Dosage: 58.5 MG, QD (175.5 MG)
     Route: 042
     Dates: start: 20231101, end: 20231103
  3. CYCLOPHOSPHAMIDE [Suspect]
     Active Substance: CYCLOPHOSPHAMIDE
     Indication: Acute lymphocytic leukaemia
     Dosage: 975 MG, QD
     Route: 042
     Dates: start: 20231101, end: 20231103
  4. CYCLOPHOSPHAMIDE [Suspect]
     Active Substance: CYCLOPHOSPHAMIDE
     Dosage: 600 MG, QD
     Route: 042
     Dates: start: 20231213, end: 20231215
  5. ENOXAPARIN [Concomitant]
     Active Substance: ENOXAPARIN
     Indication: Prophylaxis
     Dosage: 400 MG
     Route: 065
  6. FLUCONAZOLE [Concomitant]
     Active Substance: FLUCONAZOLE
     Indication: Product used for unknown indication
     Dosage: UNK
     Route: 065
  7. VALACYCLOVIR [Concomitant]
     Active Substance: VALACYCLOVIR HYDROCHLORIDE
     Indication: Prophylaxis
     Dosage: 500 MG
     Route: 048
  8. SPIRACTIN [Concomitant]
     Indication: Prophylaxis
     Dosage: 100 MG
     Route: 065
     Dates: end: 202309
  9. ACETAMINOPHEN [Concomitant]
     Active Substance: ACETAMINOPHEN
     Indication: Pain
     Dosage: UNK
     Route: 065
     Dates: start: 20231103
  10. TAPENTADOL [Concomitant]
     Active Substance: TAPENTADOL
     Indication: Pain
     Dosage: UNK UNK, QD
     Route: 065
     Dates: start: 20231104, end: 20231104
  11. ALLOPURINOL [Concomitant]
     Active Substance: ALLOPURINOL
     Indication: Prophylaxis
     Dosage: UNK
     Route: 065
     Dates: start: 20231108, end: 20231115
  12. METOCLOPRAMIDE [Concomitant]
     Active Substance: METOCLOPRAMIDE
     Indication: Prophylaxis
     Dosage: UNK
     Route: 065
     Dates: start: 20231104
  13. ONDANSETRON [Concomitant]
     Active Substance: ONDANSETRON
     Indication: Prophylaxis of nausea and vomiting
     Dosage: UNK
     Route: 065
     Dates: start: 20231103
  14. HUMAN RED BLOOD CELL [Concomitant]
     Active Substance: HUMAN RED BLOOD CELL
     Indication: Prophylaxis
     Dosage: UNK
     Route: 065
     Dates: start: 20231102, end: 20231102
  15. HUMAN RED BLOOD CELL [Concomitant]
     Active Substance: HUMAN RED BLOOD CELL
     Dosage: UNK
     Route: 065
     Dates: start: 20231103, end: 20231103
  16. HUMAN RED BLOOD CELL [Concomitant]
     Active Substance: HUMAN RED BLOOD CELL
     Dosage: UNK
     Route: 065
     Dates: start: 20231106, end: 20231106
  17. LORAZEPAM [Concomitant]
     Active Substance: LORAZEPAM
     Indication: Anxiety
     Dosage: UNK
     Route: 048
     Dates: end: 202212

REACTIONS (4)
  - Cytokine release syndrome [Recovered/Resolved]
  - Pyrexia [Recovered/Resolved]
  - Blood bilirubin abnormal [Unknown]
  - Blood creatinine abnormal [Unknown]

NARRATIVE: CASE EVENT DATE: 20231103
